FAERS Safety Report 11256177 (Version 3)
Quarter: 2021Q1

REPORT INFORMATION
  Report Type: Report from Study
  Country: None (occurrence: BE)
  Receive Date: 20150709
  Receipt Date: 20210319
  Transmission Date: 20210419
  Serious: Yes (Life-Threatening, Hospitalization)
  Sender: FDA-Public Use
  Company Number: BE-ABBVIE-15P-013-1419157-00

PATIENT
  Age: 59 Year
  Sex: Female

DRUGS (3)
  1. DASABUVIR [Suspect]
     Active Substance: DASABUVIR
     Indication: CHRONIC HEPATITIS C
     Route: 048
     Dates: start: 20150427, end: 20150621
  2. OMBITASVIR/PARITAPREVIR/RITONAVIR [Suspect]
     Active Substance: OMBITASVIR\PARITAPREVIR\RITONAVIR
     Indication: CHRONIC HEPATITIS C
     Dosage: 175/50/12.5 MG
     Route: 048
     Dates: start: 20150427, end: 20150621
  3. RIBAVIRIN. [Suspect]
     Active Substance: RIBAVIRIN
     Indication: CHRONIC HEPATITIS C
     Dosage: 400MG IN THE MORNING; 600MG IN THE EVENING
     Route: 048
     Dates: start: 20150427, end: 20150621

REACTIONS (2)
  - Hepatic failure [Not Recovered/Not Resolved]
  - Hepatorenal syndrome [Not Recovered/Not Resolved]

NARRATIVE: CASE EVENT DATE: 20150615
